FAERS Safety Report 16242201 (Version 3)
Quarter: 2019Q2

REPORT INFORMATION
  Report Type: Spontaneous
  Country: US (occurrence: US)
  Receive Date: 20190426
  Receipt Date: 20190509
  Transmission Date: 20190711
  Serious: Yes (Other)
  Sender: FDA-Public Use
  Company Number: US-SA-2019SA114259

PATIENT
  Age: 83 Year
  Sex: Female

DRUGS (1)
  1. DULCOLAX NOS [Suspect]
     Active Substance: BISACODYL OR DOCUSATE SODIUM
     Indication: BOWEL MOVEMENT IRREGULARITY
     Dosage: UNK

REACTIONS (5)
  - Blindness unilateral [Unknown]
  - Fall [Unknown]
  - Incorrect dose administered [Unknown]
  - Contraindicated product administered [Unknown]
  - Visual impairment [Unknown]

NARRATIVE: CASE EVENT DATE: 20190425
